FAERS Safety Report 18292316 (Version 2)
Quarter: 2021Q3

REPORT INFORMATION
  Report Type: Spontaneous
  Country: US (occurrence: US)
  Receive Date: 20200922
  Receipt Date: 20210831
  Transmission Date: 20211014
  Serious: Yes (Other)
  Sender: FDA-Public Use
  Company Number: US-SA-2020SA252998

PATIENT

DRUGS (1)
  1. ZANTAC [Suspect]
     Active Substance: RANITIDINE HYDROCHLORIDE
     Dosage: UNK
     Dates: start: 198001, end: 202001

REACTIONS (4)
  - Anxiety [Unknown]
  - Anhedonia [Unknown]
  - Lip and/or oral cavity cancer [Unknown]
  - Pain [Unknown]

NARRATIVE: CASE EVENT DATE: 20120101
